FAERS Safety Report 6025049-7 (Version None)
Quarter: 2008Q4

REPORT INFORMATION
  Report Type: 
  Country: None (occurrence: None)
  Receive Date: 20081229
  Receipt Date: 20081217
  Transmission Date: 20090506
  Serious: Yes (Death)
  Sender: FDA-Public Use
  Company Number: 8040589

PATIENT
  Age: 36 Year
  Sex: Female

DRUGS (5)
  1. PREDNISOLONE [Suspect]
     Indication: IMMUNOSUPPRESSION
  2. PREDNISOLONE [Suspect]
     Indication: MYELOFIBROSIS
  3. AZATHIOPRINE [Suspect]
     Indication: IMMUNOSUPPRESSION
  4. CYCLOSPORINE [Suspect]
     Indication: IMMUNOSUPPRESSION
  5. MYCOPHENOLATE MOFETIL [Suspect]
     Indication: IMMUNOSUPPRESSION

REACTIONS (8)
  - ACUTE MYELOID LEUKAEMIA [None]
  - AUTOANTIBODY POSITIVE [None]
  - MICROANGIOPATHY [None]
  - MYELOFIBROSIS [None]
  - PANCYTOPENIA [None]
  - PYREXIA [None]
  - RHEUMATOID FACTOR POSITIVE [None]
  - THERAPEUTIC RESPONSE DECREASED [None]
